FAERS Safety Report 6082264-4 (Version None)
Quarter: 2009Q1

REPORT INFORMATION
  Report Type: 
  Country: None (occurrence: None)
  Receive Date: 20090218
  Receipt Date: 20090205
  Transmission Date: 20090719
  Serious: Yes (Other)
  Sender: FDA-Public Use
  Company Number: GB-GENENTECH-277156

PATIENT

DRUGS (1)
  1. MABTHERA [Suspect]
     Indication: ANKYLOSING SPONDYLITIS

REACTIONS (1)
  - SQUAMOUS CELL CARCINOMA [None]
